FAERS Safety Report 7971453 (Version 4)
Quarter: 2013Q1

REPORT INFORMATION
  Report Type: Spontaneous
  Country: US (occurrence: US)
  Receive Date: 20110602
  Receipt Date: 20121105
  Transmission Date: 20140127
  Serious: Yes (Life-Threatening, Hospitalization, Other)
  Sender: FDA-Public Use
  Company Number: US-ASTRAZENECA-2011SE31965

PATIENT
  Age: 55 Year
  Sex: Female
  Weight: 81.6 kg

DRUGS (55)
  1. ATENOLOL [Suspect]
     Route: 048
  2. NEXIUM [Suspect]
     Indication: GASTROOESOPHAGEAL REFLUX DISEASE
     Route: 048
     Dates: start: 2008
  3. NEXIUM [Suspect]
     Indication: GASTROOESOPHAGEAL REFLUX DISEASE
     Route: 048
     Dates: start: 2008
  4. NEXIUM [Suspect]
     Indication: GASTROOESOPHAGEAL REFLUX DISEASE
     Route: 048
  5. NEXIUM [Suspect]
     Indication: GASTROOESOPHAGEAL REFLUX DISEASE
     Route: 048
  6. PRILOSEC [Suspect]
     Indication: GASTROOESOPHAGEAL REFLUX DISEASE
     Route: 048
     Dates: start: 2002, end: 2007
  7. SEROQUEL [Suspect]
     Indication: BIPOLAR DISORDER
     Route: 048
     Dates: start: 2006
  8. SEROQUEL [Suspect]
     Indication: BIPOLAR DISORDER
     Route: 048
  9. XANAX [Concomitant]
     Indication: NERVOUSNESS
  10. XANAX [Concomitant]
     Indication: ANXIETY
  11. XANAX [Concomitant]
     Indication: NERVOUSNESS
  12. XANAX [Concomitant]
     Indication: ANXIETY
  13. XANAX [Concomitant]
     Indication: NERVOUSNESS
  14. XANAX [Concomitant]
     Indication: ANXIETY
  15. XANAX [Concomitant]
     Indication: NERVOUSNESS
     Route: 048
     Dates: start: 20110813
  16. XANAX [Concomitant]
     Indication: ANXIETY
     Route: 048
     Dates: start: 20110813
  17. VICODAN [Concomitant]
  18. TRAZADONE [Concomitant]
  19. CYMBALTA [Concomitant]
     Indication: BIPOLAR DISORDER
     Dates: start: 2007, end: 2010
  20. CYMBALTA [Concomitant]
     Indication: BIPOLAR DISORDER
     Dates: start: 2010
  21. ZANAFLEX [Concomitant]
  22. ZANAFLEX [Concomitant]
  23. ZANAFLEX [Concomitant]
  24. ZANAFLEX [Concomitant]
  25. ZOVIRAX [Concomitant]
     Dosage: 400 BID
  26. ZOVIRAX [Concomitant]
     Dosage: GENERIC
  27. GEODON [Concomitant]
  28. KLONOPIN [Concomitant]
  29. NORCO [Concomitant]
     Indication: PAIN
     Dosage: 7.5/325 ONE Q 6 H. PRN
  30. NORCO [Concomitant]
     Indication: FIBROMYALGIA
     Dosage: 7.5/325 ONE Q 6 H. PRN
  31. NORCO [Concomitant]
     Indication: PAIN
     Dosage: 10/325MG BID
     Route: 048
     Dates: start: 2006
  32. NORCO [Concomitant]
     Indication: FIBROMYALGIA
     Dosage: 10/325MG BID
     Route: 048
     Dates: start: 2006
  33. NORCO [Concomitant]
     Indication: PAIN
     Dosage: 10/325 MG, ONE TABLET BY MOUTH EVERY FOUR HOURS FOR 30 DAYS
  34. NORCO [Concomitant]
     Indication: FIBROMYALGIA
     Dosage: 10/325 MG, ONE TABLET BY MOUTH EVERY FOUR HOURS FOR 30 DAYS
  35. DUONEB [Concomitant]
     Indication: DYSPNOEA
     Dosage: ONE TREATMENT Q 4H
  36. ELAVIL [Concomitant]
  37. ASPIRIN [Concomitant]
     Route: 048
     Dates: start: 2007
  38. O2 [Concomitant]
     Indication: LUNG DISORDER
     Dosage: 4 TO 6 LITERS NASAL CANULA, WEAN
  39. O2 [Concomitant]
     Indication: LUNG DISORDER
     Route: 045
     Dates: start: 2010
  40. DARVOCET-N [Concomitant]
     Dosage: 100 TID
  41. MORPHIN [Concomitant]
     Indication: PAIN
     Route: 048
     Dates: start: 20110813
  42. RESCUE INHALER [Concomitant]
     Indication: ASTHMA
     Dosage: DAILY
     Dates: start: 2008
  43. DUAL NEUBILIZER [Concomitant]
     Indication: PNEUMONIA
     Dosage: BID
     Route: 045
     Dates: start: 2010
  44. AUGMENTIN [Concomitant]
  45. ACYCLOVIR [Concomitant]
  46. ALBUTEROL [Concomitant]
     Indication: WHEEZING
     Dosage: TWO PUFFS EVERY 6 HOURS
  47. ALBUTEROL [Concomitant]
     Indication: WHEEZING
     Dosage: TWO PUFF INHALATION FOUR TIMES/DAY AS NEEDED
  48. CIPRO [Concomitant]
  49. MULTIVITAMIN [Concomitant]
     Dosage: 50
  50. TRAMADOL HCL [Concomitant]
     Dosage: 1- 2 EVERY SIX HOURS PRN
  51. MS CONTIN [Concomitant]
  52. MS CONTIN [Concomitant]
     Dosage: GENERIC
  53. MS CONTIN [Concomitant]
     Dosage: GENERIC
  54. MS CONTIN [Concomitant]
     Dosage: GENERIC, EVERY EIGHT HOURS
     Route: 048
  55. DOXYCYCLINE [Concomitant]

REACTIONS (82)
  - Lung abscess [Unknown]
  - Pneumonia necrotising [Unknown]
  - Pneumonia [Unknown]
  - Coagulopathy [Unknown]
  - Bronchopulmonary disease [Unknown]
  - Emphysema [Unknown]
  - Road traffic accident [Unknown]
  - Interstitial lung disease [Unknown]
  - Sepsis syndrome [Unknown]
  - Sternal fracture [Unknown]
  - Chronic obstructive pulmonary disease [Unknown]
  - Atelectasis [Unknown]
  - Pleural effusion [Unknown]
  - Lymph node calcification [Unknown]
  - Hilar lymphadenopathy [Unknown]
  - Paratracheal lymphadenopathy [Unknown]
  - Cardiomegaly [Unknown]
  - Nephrolithiasis [Unknown]
  - Lymphadenopathy mediastinal [Unknown]
  - Ecchymosis [Unknown]
  - Haematoma [Unknown]
  - Hypoxia [Unknown]
  - Chest pain [Unknown]
  - Pain in extremity [Unknown]
  - Respiratory tract oedema [Unknown]
  - Gastrointestinal haemorrhage [Unknown]
  - Abdominal adhesions [Unknown]
  - Sarcoidosis [Unknown]
  - Dyspnoea [Unknown]
  - Pulmonary oedema [Unknown]
  - Lung disorder [Unknown]
  - Fibromyalgia [Unknown]
  - Pain [Unknown]
  - Dementia [Unknown]
  - Hypertension [Unknown]
  - Herpes simplex [Unknown]
  - Blood cholesterol increased [Unknown]
  - Regressive behaviour [Unknown]
  - Joint range of motion decreased [Unknown]
  - Bursitis [Unknown]
  - Contusion [Unknown]
  - Contusion [Unknown]
  - Activities of daily living impaired [Unknown]
  - Musculoskeletal discomfort [Unknown]
  - Dysphagia [Unknown]
  - Cough [Unknown]
  - Musculoskeletal chest pain [Unknown]
  - Oxygen saturation decreased [Unknown]
  - Abdominal tenderness [Unknown]
  - Heart rate increased [Unknown]
  - Chest pain [Unknown]
  - Blood glucose increased [Unknown]
  - Blood triglycerides increased [Unknown]
  - Low density lipoprotein increased [Unknown]
  - Hyperlipidaemia [Unknown]
  - Rheumatoid arthritis [Unknown]
  - Hyperhidrosis [Unknown]
  - Pyrexia [Unknown]
  - Chills [Unknown]
  - Back pain [Unknown]
  - Obesity [Unknown]
  - Productive cough [Unknown]
  - Spinal pain [Unknown]
  - Hyperreflexia [Unknown]
  - Facial pain [Unknown]
  - Bipolar I disorder [Unknown]
  - Mood swings [Unknown]
  - Sinus tachycardia [Unknown]
  - Tachyphrenia [Unknown]
  - Abdominal pain lower [Unknown]
  - Hypophagia [Unknown]
  - Excoriation [Unknown]
  - Asthma [Unknown]
  - Asthenia [Unknown]
  - Muscular weakness [Unknown]
  - Gastrooesophageal reflux disease [Unknown]
  - Hypotension [Unknown]
  - Constipation [Unknown]
  - Hypoaesthesia [Unknown]
  - Hallucination, auditory [Unknown]
  - Abdominal pain upper [Unknown]
  - Drug ineffective [Unknown]
